FAERS Safety Report 7798303-6 (Version None)
Quarter: 2011Q4

REPORT INFORMATION
  Report Type: 
  Country: None (occurrence: None)
  Receive Date: 20111005
  Receipt Date: 20110930
  Transmission Date: 20120403
  Serious: Yes (Life-Threatening, Hospitalization, Other)
  Sender: FDA-Public Use
  Company Number: AT-BAYER-2011-089184

PATIENT
  Age: 89 Year
  Sex: Male
  Weight: 65 kg

DRUGS (4)
  1. MUCOBENE [Concomitant]
     Dosage: 200 MG, BID
  2. RESYL [GUAIFENESIN] [Concomitant]
     Dosage: 20 GTT, QD
  3. BERODUAL [Concomitant]
     Dosage: 1 PUFF(S), PRN
  4. AVELOX [Suspect]
     Indication: PNEUMONIA
     Dosage: 400 MG, QD
     Route: 048
     Dates: start: 20110729, end: 20110809

REACTIONS (2)
  - RENAL FAILURE [None]
  - NEPHRITIS ALLERGIC [None]
